FAERS Safety Report 25052603 (Version 1)
Quarter: 2025Q1

REPORT INFORMATION
  Report Type: Other
  Country: US (occurrence: US)
  Receive Date: 20250307
  Receipt Date: 20250307
  Transmission Date: 20250409
  Serious: Yes (Other)
  Sender: FAGRON COMPOUNDING SERVICES D/B/A FAGRON STERILE SERVICES, WICHITA, KS
  Company Number: US-Fagron Sterile Services-2172495

PATIENT
  Age: 4 Year
  Sex: Male
  Weight: 20.8 kg

DRUGS (1)
  1. EPINEPHRINE BITARTRATE\LIDOCAINE HYDROCHLORIDE\TETRACAINE HYDROCHLORID [Suspect]
     Active Substance: EPINEPHRINE BITARTRATE\LIDOCAINE HYDROCHLORIDE\TETRACAINE HYDROCHLORIDE
     Indication: Skin laceration
     Dates: start: 20250223

REACTIONS (1)
  - Drug ineffective [Recovered/Resolved]

NARRATIVE: CASE EVENT DATE: 20250223
